FAERS Safety Report 22749856 (Version 6)
Quarter: 2024Q3

REPORT INFORMATION
  Report Type: Spontaneous
  Country: US (occurrence: US)
  Receive Date: 20230726
  Receipt Date: 20240926
  Transmission Date: 20241017
  Serious: Yes (Other)
  Sender: GLAXOSMITHKLINE
  Company Number: US-GSK-US2023AMR100567

PATIENT

DRUGS (5)
  1. BENLYSTA [Suspect]
     Active Substance: BELIMUMAB
     Indication: Systemic lupus erythematosus
     Dosage: 400 MG, Q4W, ONE HOUR EVERY 28DAYS VIAP PORT AND GRAVITY
     Route: 042
  2. BENLYSTA [Suspect]
     Active Substance: BELIMUMAB
     Dosage: UNK, Q4W, ONE HOUR EVERY 28DAYS VIAP PORT AND GRAVITY
     Route: 042
  3. BENLYSTA [Suspect]
     Active Substance: BELIMUMAB
     Dosage: 120 MG, Q4W ONE HOUR EVERY 28DAYS VIAP PORT AND GRAVITY
     Route: 042
  4. BENLYSTA [Suspect]
     Active Substance: BELIMUMAB
     Indication: Systemic lupus erythematosus
     Dosage: 120 MG, Q4W VIAL
  5. BENLYSTA [Suspect]
     Active Substance: BELIMUMAB
     Dosage: 120 MG, Q4W VIAL

REACTIONS (6)
  - Thrombosis [Unknown]
  - Spinal operation [Unknown]
  - Asthma [Unknown]
  - Back pain [Unknown]
  - Balance disorder [Unknown]
  - Product dose omission issue [Unknown]
